FAERS Safety Report 10239697 (Version 1)
Quarter: 2014Q2

REPORT INFORMATION
  Report Type: Report from Study
  Country: GB (occurrence: GB)
  Receive Date: 20140616
  Receipt Date: 20140616
  Transmission Date: 20141212
  Serious: Yes (Death, Life-Threatening, Hospitalization)
  Sender: FDA-Public Use
  Company Number: GB-TEVA-488222USA

PATIENT
  Age: 59 Year
  Sex: Male

DRUGS (2)
  1. BENDAMUSTINE [Suspect]
     Indication: NON-HODGKIN^S LYMPHOMA
     Route: 042
     Dates: start: 20131031, end: 20131217
  2. TAZOCIN [Suspect]
     Indication: FEBRILE NEUTROPENIA
     Route: 048
     Dates: start: 201404, end: 20140516

REACTIONS (8)
  - Febrile neutropenia [Recovered/Resolved]
  - Respiratory failure [Fatal]
  - Septic shock [Fatal]
  - Toxic epidermal necrolysis [Fatal]
  - Multi-organ failure [Fatal]
  - Neutropenia [Fatal]
  - Thrombocytopenia [Fatal]
  - Anaemia [Fatal]
